FAERS Safety Report 9214186 (Version 2)
Quarter: 2013Q2

REPORT INFORMATION
  Report Type: Spontaneous
  Country: US (occurrence: US)
  Receive Date: 20130405
  Receipt Date: 20130411
  Transmission Date: 20140414
  Serious: No
  Sender: FDA-Public Use
  Company Number: US-009507513-1303USA002869

PATIENT
  Age: 26 Year
  Sex: Female

DRUGS (2)
  1. NUVARING [Suspect]
     Indication: CONTRACEPTION
     Dosage: 1 DF, QM (3 WEEKS IN ONE WEEK OUT)
     Route: 067
     Dates: start: 200903
  2. BOTOX [Concomitant]

REACTIONS (2)
  - Product expiration date issue [Unknown]
  - Expired drug administered [Unknown]
